FAERS Safety Report 23953167 (Version 1)
Quarter: 2024Q2

REPORT INFORMATION
  Report Type: Spontaneous
  Country: US (occurrence: US)
  Receive Date: 20240608
  Receipt Date: 20240608
  Transmission Date: 20240715
  Serious: Yes (Hospitalization, Other)
  Sender: FDA-Public Use
  Company Number: US-AMGEN-USASP2024108920

PATIENT
  Age: 78 Year
  Sex: Female

DRUGS (3)
  1. XGEVA [Suspect]
     Active Substance: DENOSUMAB
     Indication: Metastases to bone
     Dosage: UNK
     Route: 065
     Dates: start: 2014
  2. PALBOCICLIB [Concomitant]
     Active Substance: PALBOCICLIB
  3. LETROZOLE [Concomitant]
     Active Substance: LETROZOLE

REACTIONS (4)
  - Fracture nonunion [Recovered/Resolved]
  - Atypical femur fracture [Recovered/Resolved]
  - Knee arthroplasty [Unknown]
  - Periprosthetic fracture [Unknown]

NARRATIVE: CASE EVENT DATE: 20180101
